FAERS Safety Report 5302800-2 (Version None)
Quarter: 2007Q2

REPORT INFORMATION
  Report Type: 
  Country: None (occurrence: None)
  Receive Date: 20070419
  Receipt Date: 20070412
  Transmission Date: 20071010
  Serious: Yes (Hospitalization)
  Sender: FDA-Public Use
  Company Number: FR-MERCK-0704FRA00039

PATIENT
  Age: 53 Year
  Sex: Male
  Weight: 80 kg

DRUGS (7)
  1. ZOCOR [Suspect]
     Indication: DYSLIPIDAEMIA
     Route: 048
     Dates: start: 20070320, end: 20070326
  2. ZOCOR [Suspect]
     Route: 048
     Dates: end: 20030101
  3. PERINDOPRIL [Concomitant]
     Indication: HYPERTENSION
     Route: 048
     Dates: start: 20070320, end: 20070326
  4. GEMCITABINE [Concomitant]
     Indication: MYCOSIS FUNGOIDES
     Route: 042
     Dates: start: 20070319, end: 20070319
  5. ACEBUTOLOL [Concomitant]
     Indication: HYPERTENSION
     Route: 048
     Dates: start: 20050101
  6. POTASSIUM CHLORIDE [Concomitant]
     Route: 048
     Dates: start: 20050101
  7. PREDNISONE [Concomitant]
     Indication: MYCOSIS FUNGOIDES
     Route: 048
     Dates: start: 20050101

REACTIONS (2)
  - DERMATITIS BULLOUS [None]
  - DRUG ERUPTION [None]
